FAERS Safety Report 8843050 (Version 2)
Quarter: 2012Q4

REPORT INFORMATION
  Report Type: 
  Country: JP (occurrence: JP)
  Receive Date: 20121016
  Receipt Date: 20121114
  Transmission Date: 20130627
  Serious: Yes (Death)
  Sender: FDA-Public Use
  Company Number: JP-GLAXOSMITHKLINE-B0837647A

PATIENT
  Age: 56 None
  Sex: Male

DRUGS (8)
  1. PAXIL [Suspect]
     Indication: DEPRESSION
     Dosage: 12.5MG Per day
     Route: 048
     Dates: start: 20120718, end: 20120727
  2. PAXIL [Suspect]
     Indication: DEPRESSION
     Dosage: 25MG Per day
     Route: 048
     Dates: start: 20120728, end: 20120809
  3. REMERON [Concomitant]
     Indication: DEPRESSION
     Dosage: 15MG Per day
     Route: 048
     Dates: start: 20120620, end: 20120629
  4. REMERON [Concomitant]
     Indication: DEPRESSION
     Dosage: 30MG Per day
     Route: 048
     Dates: start: 20120630, end: 20120706
  5. REMERON [Concomitant]
     Indication: DEPRESSION
     Dosage: 45MG Per day
     Route: 048
     Dates: start: 20120707, end: 20120809
  6. SEDIEL [Concomitant]
     Indication: ANXIETY
     Dosage: 10MG Three times per day
     Route: 048
     Dates: start: 20120620, end: 20120706
  7. SEDIEL [Concomitant]
     Indication: ANXIETY
     Dosage: 20MG Per day
     Route: 048
     Dates: start: 20120707, end: 20120809
  8. SILECE [Concomitant]
     Indication: INSOMNIA
     Dosage: 1MG Per day
     Route: 048
     Dates: start: 20120630, end: 20120809

REACTIONS (3)
  - Completed suicide [Fatal]
  - Tension [Unknown]
  - Tremor [Unknown]
